FAERS Safety Report 8802106 (Version 2)
Quarter: 2012Q4

REPORT INFORMATION
  Report Type: 
  Country: US (occurrence: US)
  Receive Date: 20120921
  Receipt Date: 20121119
  Transmission Date: 20130627
  Serious: Yes (Other)
  Sender: FDA-Public Use
  Company Number: US-BAYER-2012-098107

PATIENT
  Age: 33 Year
  Sex: Female

DRUGS (15)
  1. YAZ [Suspect]
  2. YASMIN [Suspect]
  3. OCELLA [Suspect]
  4. FOLIC ACID AND DERIVATIVES [Concomitant]
     Dosage: 75 mg, BID
     Route: 048
  5. CENTRUM [Concomitant]
     Dosage: 1 tab (tablet) daily
     Route: 048
  6. KLONOPIN [Concomitant]
     Dosage: 1 mg, BID
     Route: 048
  7. IMITREX [Concomitant]
     Indication: MIGRAINE
     Dosage: 50 mg, daily, PRN
     Route: 048
  8. LYRICA [Concomitant]
     Dosage: 150 mg, BID
     Route: 048
  9. AMBIEN [Concomitant]
     Indication: SLEEP DISORDER NOS
     Dosage: 10 mg, at bedtime as needed
     Route: 048
  10. PLAQUINOL [Concomitant]
     Dosage: 200 mg, BID
     Route: 048
  11. PRILOSEC [Concomitant]
     Dosage: 20 mg, daily, PRN
     Route: 048
  12. LAMICTAL [Concomitant]
     Dosage: Daily
     Route: 048
  13. ABILIFY [Concomitant]
     Dosage: 15 mg, take half tablet daily
  14. ENBREL [Concomitant]
     Dosage: Weekly
     Route: 058
  15. PROZAC [Concomitant]
     Dosage: 20 mg, daily
     Route: 048

REACTIONS (2)
  - Deep vein thrombosis [None]
  - Injury [None]
